FAERS Safety Report 4823855-5 (Version None)
Quarter: 2005Q4

REPORT INFORMATION
  Report Type: 
  Country: None (occurrence: None)
  Receive Date: 20051031
  Receipt Date: 20050920
  Transmission Date: 20060501
  Serious: Yes (Life-Threatening)
  Sender: FDA-Public Use
  Company Number: PAGL/05/16/USA

PATIENT
  Age: 47 Year
  Sex: Female
  Weight: 76.2043 kg

DRUGS (4)
  1. PANGLOBULIN [Suspect]
     Indication: IMMUNOGLOBULINS DECREASED
     Dosage: IV
     Route: 042
     Dates: start: 20050916, end: 20050916
  2. PULMICORT [Concomitant]
  3. DUONEB [Concomitant]
  4. PREVACID [Concomitant]

REACTIONS (3)
  - ANAPHYLACTIC REACTION [None]
  - ASTHMA [None]
  - CONDITION AGGRAVATED [None]
